FAERS Safety Report 9594266 (Version 1)
Quarter: 2013Q3

REPORT INFORMATION
  Report Type: Spontaneous
  Country: US (occurrence: None)
  Receive Date: 20130930
  Receipt Date: 20130930
  Transmission Date: 20140515
  Serious: No
  Sender: FDA-Public Use
  Company Number: 1000048316

PATIENT
  Age: 77 Year
  Sex: Female

DRUGS (1)
  1. LINZESS (LINACLOTIDE) (CAPSULES) [Suspect]
     Dosage: 290MCG (290 MCG, 1 IN 1 D)

REACTIONS (2)
  - Pruritus [None]
  - Oedema peripheral [None]
